FAERS Safety Report 13765208 (Version 1)
Quarter: 2017Q3

REPORT INFORMATION
  Report Type: Spontaneous
  Country: FR (occurrence: FR)
  Receive Date: 20170718
  Receipt Date: 20170718
  Transmission Date: 20171127
  Serious: Yes (Life-Threatening, Hospitalization)
  Sender: FDA-Public Use
  Company Number: FR-SA-2017SA129347

PATIENT
  Age: 82 Year
  Sex: Male

DRUGS (8)
  1. LASILIX [Concomitant]
     Active Substance: FUROSEMIDE
     Route: 065
  2. LOVENOX [Suspect]
     Active Substance: ENOXAPARIN SODIUM
     Indication: THROMBOSIS PROPHYLAXIS
     Route: 058
     Dates: start: 20170606, end: 20170613
  3. XANAX [Concomitant]
     Active Substance: ALPRAZOLAM
     Route: 065
  4. LAROXYL [Concomitant]
     Active Substance: AMITRIPTYLINE
     Route: 065
  5. FRAXIPARINE [Suspect]
     Active Substance: NADROPARIN CALCIUM
     Indication: ATRIAL FIBRILLATION
     Route: 058
     Dates: start: 20170613, end: 20170614
  6. CORTANCYL [Concomitant]
     Active Substance: PREDNISONE
     Dosage: STRENGTH: 20
     Route: 065
  7. LYRICA [Concomitant]
     Active Substance: PREGABALIN
     Route: 065
  8. XATRAL [Concomitant]
     Active Substance: ALFUZOSIN
     Route: 065

REACTIONS (3)
  - Hepatic haematoma [Not Recovered/Not Resolved]
  - Pleural effusion [Not Recovered/Not Resolved]
  - Condition aggravated [Not Recovered/Not Resolved]

NARRATIVE: CASE EVENT DATE: 201703
